FAERS Safety Report 15290499 (Version 1)
Quarter: 2018Q3

REPORT INFORMATION
  Report Type: Other
  Country: AU (occurrence: AU)
  Receive Date: 20180817
  Receipt Date: 20180817
  Transmission Date: 20181010
  Serious: Yes (Hospitalization)
  Sender: FDA-Public Use
  Company Number: AU-B. BRAUN MEDICAL INC.-2053883

PATIENT
  Age: 76 Year
  Sex: Male

DRUGS (1)
  1. DEXTROSE INJECTIONS USP 0264?7510?00 0264?7510?20 [Suspect]
     Active Substance: DEXTROSE

REACTIONS (2)
  - Hypoglycaemia [Recovered/Resolved]
  - Lactic acidosis [Recovered/Resolved]
